FAERS Safety Report 4514190-3 (Version None)
Quarter: 2004Q4

REPORT INFORMATION
  Report Type: 
  Country: None (occurrence: None)
  Receive Date: 20041124
  Receipt Date: 20041110
  Transmission Date: 20050328
  Serious: Yes (Disabling)
  Sender: FDA-Public Use
  Company Number: 200210504BNE

PATIENT
  Age: 48 Year
  Sex: Male
  Weight: 74 kg

DRUGS (9)
  1. CIPROFLOXACIN [Suspect]
     Indication: EPIDIDYMITIS
     Dosage: 1000 MG, TOTAL DAILY, ORAL
     Route: 048
     Dates: start: 20020126, end: 20020223
  2. CIPROFLOXACIN [Suspect]
     Indication: ORCHITIS
     Dosage: 1000 MG, TOTAL DAILY, ORAL
     Route: 048
     Dates: start: 20020126, end: 20020223
  3. CIPROFLOXACIN [Suspect]
     Indication: PROSTATITIS
     Dosage: 1000 MG, TOTAL DAILY, ORAL
     Route: 048
     Dates: start: 20020126, end: 20020223
  4. CIPROFLOXACIN [Suspect]
     Indication: EPIDIDYMITIS
     Dosage: 1000 MG, TOTAL DAILY, ORAL
     Route: 048
     Dates: start: 20020806
  5. CIPROFLOXACIN [Suspect]
     Indication: ORCHITIS
     Dosage: 1000 MG, TOTAL DAILY, ORAL
     Route: 048
     Dates: start: 20020806
  6. CIPROFLOXACIN [Suspect]
     Indication: PROSTATITIS
     Dosage: 1000 MG, TOTAL DAILY, ORAL
     Route: 048
     Dates: start: 20020806
  7. OFLOXACILLIN [Concomitant]
  8. TAMSULOSIN [Concomitant]
  9. NAPROXEN [Concomitant]

REACTIONS (19)
  - ACTIVITIES OF DAILY LIVING IMPAIRED [None]
  - ALOPECIA [None]
  - BURNING SENSATION [None]
  - BUTTOCK PAIN [None]
  - DISCOMFORT [None]
  - FORMICATION [None]
  - GROIN PAIN [None]
  - INITIAL INSOMNIA [None]
  - MEDICATION ERROR [None]
  - MUSCLE TWITCHING [None]
  - MYALGIA [None]
  - NEURALGIA [None]
  - NEUROPATHY [None]
  - PAIN IN EXTREMITY [None]
  - PARAESTHESIA [None]
  - PROSTRATION [None]
  - SCROTAL PAIN [None]
  - TINNITUS [None]
  - VISUAL DISTURBANCE [None]
